FAERS Safety Report 13843655 (Version 1)
Quarter: 2017Q3

REPORT INFORMATION
  Report Type: Spontaneous
  Country: JP (occurrence: JP)
  Receive Date: 20170808
  Receipt Date: 20170808
  Transmission Date: 20171127
  Serious: Yes (Other)
  Sender: FDA-Public Use
  Company Number: JP-JNJFOC-20170803350

PATIENT
  Sex: Female

DRUGS (2)
  1. DOXIL [Suspect]
     Active Substance: DOXORUBICIN HYDROCHLORIDE
     Indication: OVARIAN CANCER RECURRENT
     Route: 042
  2. BEVACIZUMAB. [Suspect]
     Active Substance: BEVACIZUMAB
     Indication: OVARIAN CANCER RECURRENT
     Route: 065

REACTIONS (7)
  - Stomatitis [Unknown]
  - Urinary tract infection [Unknown]
  - Bone marrow failure [Unknown]
  - Gastrointestinal perforation [Unknown]
  - Palmar-plantar erythrodysaesthesia syndrome [Unknown]
  - Liver disorder [Unknown]
  - Hypertension [Unknown]
